FAERS Safety Report 20430429 (Version 1)
Quarter: 2022Q1

REPORT INFORMATION
  Report Type: Report from Study
  Country: FR (occurrence: FR)
  Receive Date: 20220204
  Receipt Date: 20220204
  Transmission Date: 20220424
  Serious: Yes (Other)
  Sender: FDA-Public Use
  Company Number: FR-SERVIER-S20007496

PATIENT

DRUGS (9)
  1. PEGASPARGASE [Suspect]
     Active Substance: PEGASPARGASE
     Indication: Acute lymphocytic leukaemia
     Dosage: 1750 IU D15, D43
     Route: 042
     Dates: start: 20200417, end: 20200518
  2. CYCLOPHOSPHAMIDE [Suspect]
     Active Substance: CYCLOPHOSPHAMIDE
     Indication: Acute lymphocytic leukaemia
     Dosage: 700 MG D1,D29
     Route: 042
     Dates: start: 20200403, end: 20200504
  3. CYTARABINE [Suspect]
     Active Substance: CYTARABINE
     Indication: Acute lymphocytic leukaemia
     Dosage: 52.5 MG QD FROM D3 TO D6, ON D10, D13
     Route: 042
     Dates: start: 20200406, end: 20200415
  4. CYTARABINE [Suspect]
     Active Substance: CYTARABINE
     Dosage: 30 MG ON D3,D31
     Route: 037
     Dates: start: 20200406, end: 20200506
  5. CYTARABINE [Suspect]
     Active Substance: CYTARABINE
     Dosage: 49.5 MG D31 TO D34,  D38 TO D41
     Route: 042
     Dates: start: 20200506, end: 20200516
  6. METHOTREXATE SODIUM [Suspect]
     Active Substance: METHOTREXATE SODIUM
     Indication: Acute lymphocytic leukaemia
     Dosage: 12 MG ON D3,D31
     Route: 037
     Dates: start: 20200406, end: 20200506
  7. HYDROCORTISONE BUTYRATE [Suspect]
     Active Substance: HYDROCORTISONE BUTYRATE
     Indication: Acute lymphocytic leukaemia
     Dosage: 15 MG ON D3,D31
     Route: 037
     Dates: start: 20200406, end: 20200506
  8. VINCRISTINE SULFATE [Suspect]
     Active Substance: VINCRISTINE SULFATE
     Indication: Acute lymphocytic leukaemia
     Dosage: 1 MG ON D15, D22, D43, D50
     Route: 042
     Dates: start: 20200417, end: 20200525
  9. MERCAPTOPURINE [Suspect]
     Active Substance: MERCAPTOPURINE
     Indication: Acute lymphocytic leukaemia
     Dosage: 42 MG QD FROM D1 TO D14, FROM D29 TO D42
     Route: 048
     Dates: start: 20200403, end: 20200517

REACTIONS (1)
  - Sepsis [Recovered/Resolved]

NARRATIVE: CASE EVENT DATE: 20200531
